FAERS Safety Report 9636516 (Version 2)
Quarter: 2014Q1

REPORT INFORMATION
  Report Type: Spontaneous
  Country: US (occurrence: US)
  Receive Date: 20131021
  Receipt Date: 20140307
  Transmission Date: 20141002
  Serious: Yes (Death, Life-Threatening, Disabling, Other)
  Sender: FDA-Public Use
  Company Number: US-MERCK-1310USA009205

PATIENT
  Sex: Female
  Weight: 120.18 kg

DRUGS (4)
  1. JANUVIA [Suspect]
     Indication: TYPE 2 DIABETES MELLITUS
     Dosage: 100 MG, QD
     Route: 048
     Dates: start: 20070628, end: 20120906
  2. BYETTA [Suspect]
     Indication: TYPE 2 DIABETES MELLITUS
     Dosage: 10 MICROGRAM, BID
     Dates: start: 20051027, end: 20060531
  3. HUMULIN [Concomitant]
     Indication: TYPE 2 DIABETES MELLITUS
     Dosage: UNK
  4. METFORMIN [Concomitant]
     Indication: TYPE 2 DIABETES MELLITUS
     Dosage: UNK

REACTIONS (13)
  - Pancreatic carcinoma [Fatal]
  - Bile duct cancer [Unknown]
  - Knee operation [Unknown]
  - Cholecystectomy [Unknown]
  - Spinal operation [Unknown]
  - Liver function test abnormal [Unknown]
  - Dyspnoea [Unknown]
  - Cardiomegaly [Unknown]
  - Bile duct stent insertion [Unknown]
  - Bladder dilatation [Unknown]
  - Diverticulum [Unknown]
  - Intervertebral disc degeneration [Unknown]
  - Spondylolisthesis [Unknown]
